FAERS Safety Report 4433898-1 (Version None)
Quarter: 2004Q3

REPORT INFORMATION
  Report Type: 
  Country: None (occurrence: None)
  Receive Date: 20040824
  Receipt Date: 20040824
  Transmission Date: 20050211
  Serious: Yes (Life-Threatening, Hospitalization)
  Sender: FDA-Public Use
  Company Number: CTU 225486E

PATIENT
  Age: 51 Year
  Sex: Male
  Weight: 69.8539 kg

DRUGS (2)
  1. NEULASTA [Suspect]
     Indication: MYELODYSPLASTIC SYNDROME
     Dosage: 6 MG ONCE SUBCUTANEOUS
     Route: 058
     Dates: start: 20040817, end: 20040817
  2. ARANESP [Concomitant]

REACTIONS (5)
  - FEBRILE NEUTROPENIA [None]
  - MYALGIA [None]
  - NEUTROPHIL PERCENTAGE INCREASED [None]
  - SPLENIC RUPTURE [None]
  - WHITE BLOOD CELL COUNT INCREASED [None]
